FAERS Safety Report 4621635-7 (Version None)
Quarter: 2005Q1

REPORT INFORMATION
  Report Type: 
  Country: None (occurrence: None)
  Receive Date: 20050329
  Receipt Date: 20040420
  Transmission Date: 20050727
  Serious: Yes (Other)
  Sender: FDA-Public Use
  Company Number: 9687

PATIENT

DRUGS (1)
  1. METHOTREXATE [Suspect]

REACTIONS (1)
  - FOOD ALLERGY [None]
